FAERS Safety Report 9419607 (Version 2)
Quarter: 2013Q3

REPORT INFORMATION
  Report Type: Spontaneous
  Country: CA (occurrence: CA)
  Receive Date: 20130725
  Receipt Date: 20130830
  Transmission Date: 20140515
  Serious: Yes (Other)
  Sender: FDA-Public Use
  Company Number: CA-ABBOTT-13P-028-1120765-00

PATIENT
  Age: 79 Year
  Sex: Male
  Weight: 97 kg

DRUGS (1)
  1. LUPRON DEPOT [Suspect]
     Indication: PROSTATE CANCER
     Dosage: LIQUID SUBCUTANEOUS
     Route: 030
     Dates: start: 2002, end: 2011

REACTIONS (7)
  - Renal disorder [Not Recovered/Not Resolved]
  - Blood creatine abnormal [Not Recovered/Not Resolved]
  - Blood urea increased [Not Recovered/Not Resolved]
  - Renal injury [Unknown]
  - Pathogen resistance [Unknown]
  - Blood creatinine increased [Unknown]
  - Blood urea increased [Unknown]
